FAERS Safety Report 5557049-5 (Version None)
Quarter: 2007Q4

REPORT INFORMATION
  Report Type: 
  Country: None (occurrence: None)
  Receive Date: 20071211
  Receipt Date: 20071123
  Transmission Date: 20080405
  Serious: Yes (Hospitalization)
  Sender: FDA-Public Use
  Company Number: DSA_30939_2007

PATIENT
  Age: 68 Year
  Sex: Male

DRUGS (1)
  1. ORFIDAL (ORFIDAL - LORAZEPAM) [Suspect]
     Dosage: DF ORAL
     Route: 048
     Dates: start: 20070106

REACTIONS (2)
  - SOMNOLENCE [None]
  - VOMITING [None]
